FAERS Safety Report 10388888 (Version 1)
Quarter: 2014Q1

REPORT INFORMATION
  Report Type: Spontaneous
  Country: US (occurrence: None)
  Receive Date: 20140306
  Receipt Date: 20140306
  Transmission Date: 20141002
  Serious: Yes (Hospitalization)
  Sender: FDA-Public Use
  Company Number: 163-21880-13072277

PATIENT
  Age: 81 Year
  Sex: Female
  Weight: 59 kg

DRUGS (21)
  1. REVLIMID (LENALIDOMIDE) (5 MILLIGRAM, CAPSULES) [Suspect]
     Indication: PLASMA CELL MYELOMA
     Dosage: 21 IN 28 D
     Route: 048
     Dates: start: 20120730
  2. FISH OIL [Concomitant]
  3. VITAMIN B12 (CYANOCOBALAMIN) [Concomitant]
  4. VICODIN [Concomitant]
  5. VALTREX (VALACICLOVIR HYDROCHLORIDE) [Concomitant]
  6. GABAPENTIN [Concomitant]
  7. LASIX (FUROSEMIDE) [Concomitant]
  8. CALCIUM WITH VITAMIN D (CALCIUM D3 ^STADA^) [Concomitant]
  9. ZOFRAN (ONDANSETRON HYDROCHLORIDE) [Concomitant]
  10. STOOL SOFTENER (DOCUSATE SODIUM) [Concomitant]
  11. VITAMIN E (TOCOPHEROL) [Concomitant]
  12. FOLIC ACID [Concomitant]
  13. ZOMETA (ZOLEDRONIC ACID) [Concomitant]
  14. DEXAMETHASONE [Concomitant]
  15. VELCADE (BORTEZOMIB) [Concomitant]
  16. PROCRIT (ERYTHROPOIETIN) [Concomitant]
  17. VENOFER (SACCHARATED IRON OXIDE) [Concomitant]
  18. ASPIRIN EC (ACETYLSALICYLIC ACID) [Concomitant]
  19. VITAMIN B COMPLEX (B-KOMPLEX ^LECIVA^) [Concomitant]
  20. ASA (ACETYLSALICYLIC ACID) [Concomitant]
  21. CARFILZOMIB [Concomitant]

REACTIONS (1)
  - Jugular vein thrombosis [None]
